FAERS Safety Report 4677602-0 (Version None)
Quarter: 2005Q2

REPORT INFORMATION
  Report Type: 
  Country: None (occurrence: None)
  Receive Date: 20050531
  Receipt Date: 20050224
  Transmission Date: 20051028
  Serious: Yes (Hospitalization, Disabling)
  Sender: FDA-Public Use
  Company Number: US-ROCHE-396669

PATIENT
  Age: 23 Year
  Sex: Male
  Weight: 79.4 kg

DRUGS (5)
  1. ACCUTANE [Suspect]
     Indication: ACNE
     Dosage: ADMINISTERED MONDAY - FRIDAY EACH WEEK.
     Route: 048
     Dates: start: 20000927, end: 20001010
  2. ACCUTANE [Suspect]
     Dosage: ADMINISTERED ON MONDAY, WEDNESDAY AND FRIDAY EACH WEEK.
     Route: 048
     Dates: start: 20001010, end: 20010112
  3. ACCUTANE [Suspect]
     Route: 048
     Dates: start: 20010122
  4. CLEOCIN [Concomitant]
     Indication: ACNE
     Route: 061
     Dates: start: 20001101
  5. DIFFERIN [Concomitant]
     Indication: ACNE
     Dates: start: 20010112

REACTIONS (14)
  - ABDOMINAL PAIN [None]
  - ABDOMINAL PAIN LOWER [None]
  - ASTHMA [None]
  - CROHN'S DISEASE [None]
  - DRY SKIN [None]
  - ERYTHEMA [None]
  - GASTROINTESTINAL DISORDER [None]
  - INFLAMMATORY BOWEL DISEASE [None]
  - INTESTINAL HAEMORRHAGE [None]
  - LACTOSE INTOLERANCE [None]
  - MULTI-ORGAN DISORDER [None]
  - NAUSEA [None]
  - RECTAL HAEMORRHAGE [None]
  - VOMITING [None]
